FAERS Safety Report 13959659 (Version 2)
Quarter: 2017Q3

REPORT INFORMATION
  Report Type: Other
  Country: US (occurrence: US)
  Receive Date: 20170911
  Receipt Date: 20170920
  Transmission Date: 20171128
  Serious: Yes (Hospitalization)
  Sender: FDA-Public Use
  Company Number: US-ACORDA-ACO_141661_2017

PATIENT
  Age: 46 Year
  Sex: Female

DRUGS (1)
  1. AMPYRA [Suspect]
     Active Substance: DALFAMPRIDINE
     Indication: MULTIPLE SCLEROSIS
     Dosage: 10 MG, BID
     Route: 048
     Dates: start: 20170101

REACTIONS (3)
  - Intestinal obstruction [Recovered/Resolved]
  - Loss of personal independence in daily activities [Unknown]
  - Fatigue [Unknown]

NARRATIVE: CASE EVENT DATE: 20170722
